FAERS Safety Report 4973467-8 (Version None)
Quarter: 2006Q2

REPORT INFORMATION
  Report Type: 
  Country: None (occurrence: None)
  Receive Date: 20060413
  Receipt Date: 20060413
  Transmission Date: 20061013
  Serious: Yes (Hospitalization)
  Sender: FDA-Public Use
  Company Number: None

PATIENT
  Age: 70 Year
  Sex: Male

DRUGS (5)
  1. OXALIPLATIN [Suspect]
     Dosage: 70 MG IV Q WEEK
     Route: 042
     Dates: start: 20060301
  2. OXALIPLATIN [Suspect]
     Dosage: 70 MG IV Q WEEK
     Route: 042
     Dates: start: 20060308
  3. OXALIPLATIN [Suspect]
     Dosage: 70 MG IV Q WEEK
     Route: 042
     Dates: start: 20060315
  4. FLUOROURACIL [Suspect]
     Dosage: 354 MG IV DAILY (CIVI)
     Route: 042
     Dates: start: 20060301, end: 20060327
  5. AVASTIN [Suspect]
     Dosage: 334 MG IV Q 2 WEEKS
     Route: 042

REACTIONS (6)
  - ANAEMIA [None]
  - DIARRHOEA [None]
  - HYPOCALCAEMIA [None]
  - HYPOKALAEMIA [None]
  - HYPOPHOSPHATAEMIA [None]
  - HYPOVOLAEMIA [None]
